FAERS Safety Report 12350826 (Version 1)
Quarter: 2016Q2

REPORT INFORMATION
  Report Type: Spontaneous
  Country: US (occurrence: None)
  Receive Date: 20160509
  Receipt Date: 20160509
  Transmission Date: 20160815
  Serious: No
  Sender: FDA-Public Use
  Company Number: None

PATIENT
  Age: 72 Year
  Sex: Female
  Weight: 53.52 kg

DRUGS (3)
  1. AMLODIPINE [Concomitant]
     Active Substance: AMLODIPINE BESYLATE
  2. CIPROFLOXACIN 0.3 [Suspect]
     Active Substance: CIPROFLOXACIN
     Route: 047
     Dates: start: 20160105, end: 20160109
  3. FISH OIL [Concomitant]
     Active Substance: FISH OIL

REACTIONS (10)
  - Visual acuity reduced [None]
  - Eye irritation [None]
  - Ocular hyperaemia [None]
  - Neck pain [None]
  - Headache [None]
  - Eye swelling [None]
  - Chalazion [None]
  - Eye pain [None]
  - Visual impairment [None]
  - Retinal disorder [None]

NARRATIVE: CASE EVENT DATE: 201601
